FAERS Safety Report 21874146 (Version 1)
Quarter: 2023Q1

REPORT INFORMATION
  Report Type: Spontaneous
  Country: FI (occurrence: FI)
  Receive Date: 20230117
  Receipt Date: 20230117
  Transmission Date: 20230418
  Serious: Yes (Life-Threatening)
  Sender: FDA-Public Use
  Company Number: None

PATIENT
  Age: 28 Year
  Sex: Male

DRUGS (3)
  1. CLOZAPINE [Suspect]
     Active Substance: CLOZAPINE
     Indication: Psychotic symptom
     Dosage: 750 MILLIGRAM, QD (750MG DAILY)
     Route: 048
     Dates: start: 202204
  2. CLOZAPINE [Suspect]
     Active Substance: CLOZAPINE
     Indication: Psychotic symptom
     Dosage: 750 MILLIGRAM, QD (750MG DAILY)
     Route: 048
     Dates: start: 202109
  3. LORAZEPAM [Suspect]
     Active Substance: LORAZEPAM
     Indication: Product used for unknown indication
     Dosage: 3 MILLIGRAM, QD (3MG DAILY)
     Route: 048
     Dates: start: 202201, end: 202211

REACTIONS (6)
  - Sleep terror [Unknown]
  - Antipsychotic drug level increased [Unknown]
  - Depressed level of consciousness [Unknown]
  - Arrhythmia [Unknown]
  - Seizure [Unknown]
  - Duplicate therapy error [Unknown]

NARRATIVE: CASE EVENT DATE: 20220501
